FAERS Safety Report 25111128 (Version 1)
Quarter: 2025Q1

REPORT INFORMATION
  Report Type: Spontaneous
  Country: US (occurrence: US)
  Receive Date: 20250324
  Receipt Date: 20250324
  Transmission Date: 20250409
  Serious: No
  Sender: ROCHE
  Company Number: US-CHEPLA-2025003354

PATIENT
  Age: 49 Year
  Sex: Female

DRUGS (18)
  1. GANCICLOVIR [Suspect]
     Active Substance: GANCICLOVIR
     Indication: Cytomegalovirus viraemia
     Route: 042
     Dates: start: 2022
  2. VALGANCICLOVIR [Suspect]
     Active Substance: VALGANCICLOVIR
     Indication: Cytomegalovirus viraemia
     Dosage: MAINTENANCE THERAPY/TWICE A DAY
     Route: 048
  3. VALGANCICLOVIR [Suspect]
     Active Substance: VALGANCICLOVIR
     Route: 048
  4. FOSCARNET [Concomitant]
     Active Substance: FOSCARNET
     Indication: Cytomegalovirus viraemia
     Route: 042
  5. FOSCARNET [Concomitant]
     Active Substance: FOSCARNET
     Indication: Cytomegalovirus chorioretinitis
     Route: 031
  6. MARIBAVIR [Concomitant]
     Active Substance: MARIBAVIR
     Indication: Cytomegalovirus viraemia
     Route: 048
     Dates: start: 202304
  7. MARIBAVIR [Concomitant]
     Active Substance: MARIBAVIR
     Indication: Cytomegalovirus chorioretinitis
  8. DECITABINE [Concomitant]
     Active Substance: DECITABINE
     Indication: Pneumonia
     Route: 042
  9. DECITABINE [Concomitant]
     Active Substance: DECITABINE
     Indication: Respiratory failure
     Route: 048
  10. INQOVI [Concomitant]
     Active Substance: CEDAZURIDINE\DECITABINE
     Indication: Pneumonia
  11. INQOVI [Concomitant]
     Active Substance: CEDAZURIDINE\DECITABINE
     Indication: Respiratory failure
  12. CLADRIBINE [Concomitant]
     Active Substance: CLADRIBINE
     Indication: Acute myeloid leukaemia
     Dates: start: 202306
  13. CYTARABINE [Concomitant]
     Active Substance: CYTARABINE
     Indication: Acute myeloid leukaemia
     Dates: start: 202306
  14. granulocyte-colony-stimulating factor [Concomitant]
     Indication: Acute myeloid leukaemia
     Dates: start: 202306
  15. FILGRASTIM [Concomitant]
     Active Substance: FILGRASTIM
     Indication: Acute myeloid leukaemia
     Dates: start: 202306
  16. MITOXANTRONE [Concomitant]
     Active Substance: MITOXANTRONE HYDROCHLORIDE
     Indication: Acute myeloid leukaemia
     Dates: start: 202306
  17. VENETOCLAX [Concomitant]
     Active Substance: VENETOCLAX
     Indication: Acute myeloid leukaemia
  18. BUDESONIDE [Concomitant]
     Active Substance: BUDESONIDE

REACTIONS (2)
  - Drug resistance [Unknown]
  - Off label use [Unknown]

NARRATIVE: CASE EVENT DATE: 20230801
